FAERS Safety Report 12724758 (Version 1)
Quarter: 2016Q3

REPORT INFORMATION
  Report Type: Spontaneous
  Country: US (occurrence: US)
  Receive Date: 20160905
  Receipt Date: 20160905
  Transmission Date: 20161109
  Serious: Yes (Other)
  Sender: FDA-Public Use
  Company Number: None

PATIENT
  Age: 68 Year
  Sex: Female
  Weight: 65.25 kg

DRUGS (8)
  1. VITAMIN B COMPLEX [Concomitant]
     Active Substance: CYANOCOBALAMIN\DEXPANTHENOL\NIACINAMIDE\PYRIDOXINE HYDROCHLORIDE\RIBOFLAVIN 5^-PHOSPHATE SODIUM\THIAMINE HYDROCHLORIDE\VITAMIN B COMPLEX
  2. HIGH QUALITY OMEGA3 FISH OIL [Concomitant]
  3. A COMPLEX [Concomitant]
  4. C COMPLEX [Concomitant]
  5. GARLIC-PARSLEY [Concomitant]
  6. LEVOFLOXACIN. [Suspect]
     Active Substance: LEVOFLOXACIN
     Indication: SINUSITIS
     Route: 048
     Dates: start: 20160609, end: 20160618
  7. CRANBERRY. [Concomitant]
     Active Substance: CRANBERRY
  8. VITAMIN D3 [Concomitant]
     Active Substance: CHOLECALCIFEROL

REACTIONS (3)
  - Pain [None]
  - Tendon pain [None]
  - Ligament pain [None]

NARRATIVE: CASE EVENT DATE: 20160618
